FAERS Safety Report 5238071-5 (Version None)
Quarter: 2007Q1

REPORT INFORMATION
  Report Type: 
  Country: None (occurrence: None)
  Receive Date: 20070209
  Receipt Date: 20070209
  Transmission Date: 20070707
  Serious: Yes (Death)
  Sender: FDA-Public Use
  Company Number: None

PATIENT
  Age: 47 Year
  Sex: Male
  Weight: 113.3993 kg

DRUGS (1)
  1. METHADONE HCL [Suspect]
     Indication: BACK PAIN
     Dosage: 40 MGS QID PO
     Route: 048
     Dates: start: 20040128, end: 20040201

REACTIONS (4)
  - ANXIETY [None]
  - MUSCLE SPASMS [None]
  - OVERDOSE [None]
  - TREATMENT NONCOMPLIANCE [None]
